FAERS Safety Report 5383699-5 (Version None)
Quarter: 2007Q3

REPORT INFORMATION
  Report Type: 
  Country: None (occurrence: None)
  Receive Date: 20070711
  Receipt Date: 20070704
  Transmission Date: 20080115
  Serious: Yes (Other)
  Sender: FDA-Public Use
  Company Number: CHWYE721024MAY07

PATIENT
  Age: 50 Year
  Sex: Male
  Weight: 73 kg

DRUGS (5)
  1. EFFEXOR [Suspect]
     Indication: DEPRESSION
     Route: 048
     Dates: start: 20051001, end: 20060201
  2. EFFEXOR [Suspect]
     Route: 048
     Dates: start: 20060201, end: 20070201
  3. EFFEXOR [Suspect]
     Route: 048
     Dates: start: 20070206, end: 20070427
  4. EFFEXOR [Suspect]
     Dosage: FROM 300 MG TO 225 AND 150 MG
     Route: 048
     Dates: start: 20070428
  5. LISINOPRIL [Concomitant]
     Indication: HYPERTENSION
     Dates: start: 20060701

REACTIONS (3)
  - CIRCULATORY COLLAPSE [None]
  - COUGH [None]
  - WEIGHT INCREASED [None]
